FAERS Safety Report 14584883 (Version 2)
Quarter: 2018Q2

REPORT INFORMATION
  Report Type: Spontaneous
  Country: US (occurrence: US)
  Receive Date: 20180301
  Receipt Date: 20180608
  Transmission Date: 20180711
  Serious: Yes (Hospitalization)
  Sender: FDA-Public Use
  Company Number: US-CIPLA LTD.-2018US07162

PATIENT

DRUGS (8)
  1. DIDANOSINE. [Concomitant]
     Active Substance: DIDANOSINE
     Indication: PERINATAL HIV INFECTION
     Dosage: UNK
     Route: 065
  2. EMTRICITABINE [Suspect]
     Active Substance: EMTRICITABINE
     Dosage: UNK
     Route: 065
  3. EPZICOM [Concomitant]
     Active Substance: ABACAVIR SULFATE\LAMIVUDINE
     Indication: PERINATAL HIV INFECTION
     Dosage: UNK, PER DAY
     Route: 065
  4. LAMIVUDINE. [Suspect]
     Active Substance: LAMIVUDINE
     Dosage: UNK
     Route: 065
  5. RITONAVIR. [Suspect]
     Active Substance: RITONAVIR
     Indication: PERINATAL HIV INFECTION
     Dosage: UNK
     Route: 065
  6. ATAZANAVIR. [Concomitant]
     Active Substance: ATAZANAVIR SULFATE
     Indication: PERINATAL HIV INFECTION
     Dosage: UNK
     Route: 065
  7. ABACAVIR. [Concomitant]
     Active Substance: ABACAVIR
     Indication: PERINATAL HIV INFECTION
     Dosage: UNK,12 HOURS
     Route: 065
  8. TRIAMCINOLONE ACETONIDE. [Interacting]
     Active Substance: TRIAMCINOLONE ACETONIDE
     Indication: ANALGESIC THERAPY
     Dosage: 40 MG, IN TOTAL
     Route: 014

REACTIONS (3)
  - Drug interaction [Unknown]
  - Drug resistance [Unknown]
  - Pituitary-dependent Cushing^s syndrome [Recovering/Resolving]
